FAERS Safety Report 21848183 (Version 2)
Quarter: 2023Q1

REPORT INFORMATION
  Report Type: Spontaneous
  Country: CA (occurrence: CA)
  Receive Date: 20230111
  Receipt Date: 20230112
  Transmission Date: 20230418
  Serious: Yes (Hospitalization, Other)
  Sender: FDA-Public Use
  Company Number: CA-PFIZER INC-202300011366

PATIENT
  Age: 55 Year
  Sex: Male
  Weight: 122.7 kg

DRUGS (4)
  1. METHOTREXATE SODIUM [Suspect]
     Active Substance: METHOTREXATE SODIUM
     Indication: Ocular sarcoidosis
     Dosage: 1 DF, DOSAGE INFO: UNKNOWNSTATUS: DISCONTINUED
     Route: 058
  2. METHOTREXATE SODIUM [Suspect]
     Active Substance: METHOTREXATE SODIUM
     Indication: Pulmonary sarcoidosis
  3. METHOTREXATE SODIUM [Suspect]
     Active Substance: METHOTREXATE SODIUM
     Indication: Sarcoidosis
  4. REMICADE [Concomitant]
     Active Substance: INFLIXIMAB
     Indication: Neurosarcoidosis
     Dosage: 600 MG, EVERY 8 WEEKS
     Route: 042

REACTIONS (5)
  - Alcohol abuse [Unknown]
  - Off label use [Unknown]
  - Off label use [Unknown]
  - Hepatic enzyme increased [Not Recovered/Not Resolved]
  - Fatty liver alcoholic [Not Recovered/Not Resolved]

NARRATIVE: CASE EVENT DATE: 20220101
